FAERS Safety Report 13402089 (Version 5)
Quarter: 2018Q3

REPORT INFORMATION
  Report Type: Report from Study
  Country: US (occurrence: US)
  Receive Date: 20170404
  Receipt Date: 20180705
  Transmission Date: 20181010
  Serious: Yes (Other)
  Sender: FDA-Public Use
  Company Number: US-009507513-1703USA014441

PATIENT
  Age: 76 Year
  Sex: Female
  Weight: 47.17 kg

DRUGS (15)
  1. PEMBROLIZUMAB. [Suspect]
     Active Substance: PEMBROLIZUMAB
     Dosage: 200 MG, Q3W
     Route: 042
     Dates: start: 20170425, end: 20170606
  2. PEMBROLIZUMAB. [Suspect]
     Active Substance: PEMBROLIZUMAB
     Dosage: 200 MG, UNK
     Route: 042
     Dates: end: 20180220
  3. ADVANCED BIONUTRITIONALS ULTIMATE BONE SUPPORT [Suspect]
     Active Substance: DIETARY SUPPLEMENT
     Indication: ROUTINE HEALTH MAINTENANCE
     Dosage: ONCE A DAY
     Dates: end: 2017
  4. ESTRADIOL. [Concomitant]
     Active Substance: ESTRADIOL
     Dosage: UNK
     Route: 067
  5. METFORMIN [Concomitant]
     Active Substance: METFORMIN HYDROCHLORIDE
     Dosage: UNK
     Dates: end: 20170620
  6. PEMBROLIZUMAB. [Suspect]
     Active Substance: PEMBROLIZUMAB
     Indication: NON-SMALL CELL LUNG CANCER STAGE IV
     Dosage: 200 MG, EVERY 3 WEEKS
     Route: 042
     Dates: start: 20170310, end: 20170310
  7. PEMBROLIZUMAB. [Suspect]
     Active Substance: PEMBROLIZUMAB
     Dosage: 200 MG, UNK
     Route: 042
     Dates: start: 20170626, end: 20170626
  8. PEMBROLIZUMAB. [Suspect]
     Active Substance: PEMBROLIZUMAB
     Dosage: 200 MG, Q3W
     Route: 042
     Dates: start: 20170829, end: 20171010
  9. PEMBROLIZUMAB. [Suspect]
     Active Substance: PEMBROLIZUMAB
     Dosage: 200 MG, UNK
     Route: 042
     Dates: start: 20171114, end: 20171114
  10. IMODIUM [Suspect]
     Active Substance: LOPERAMIDE HYDROCHLORIDE
     Indication: DIARRHOEA
     Dosage: 2 MG, UNK
     Dates: start: 201706, end: 2017
  11. PEMBROLIZUMAB. [Suspect]
     Active Substance: PEMBROLIZUMAB
     Dosage: 200 MG, UNK
     Route: 042
     Dates: start: 20180105, end: 20180105
  12. ONDANSETRON [Suspect]
     Active Substance: ONDANSETRON
     Dosage: UNK
     Dates: start: 2017, end: 2017
  13. PEMBROLIZUMAB. [Suspect]
     Active Substance: PEMBROLIZUMAB
     Dosage: 200 MG, UNK
     Route: 042
     Dates: start: 20170404, end: 20170404
  14. PEMBROLIZUMAB. [Suspect]
     Active Substance: PEMBROLIZUMAB
     Dosage: 200 MG, Q3W
     Route: 042
     Dates: start: 20171205, end: 20171205
  15. PEMBROLIZUMAB. [Suspect]
     Active Substance: PEMBROLIZUMAB
     Dosage: 200 MG, UNK
     Route: 042
     Dates: start: 20170808, end: 20170808

REACTIONS (43)
  - Epistaxis [Recovered/Resolved]
  - Trichorrhexis [Unknown]
  - Pigmentation disorder [Recovered/Resolved]
  - Feeling jittery [Unknown]
  - Pruritus [Recovering/Resolving]
  - Inappropriate schedule of drug administration [Unknown]
  - Sneezing [Unknown]
  - Hyperphagia [Unknown]
  - Paraesthesia [Recovering/Resolving]
  - Vomiting [Unknown]
  - Inappropriate schedule of drug administration [Unknown]
  - Osteonecrosis of jaw [Unknown]
  - Gastric disorder [Unknown]
  - Dry skin [Recovered/Resolved]
  - Pyrexia [Unknown]
  - Inappropriate schedule of drug administration [Unknown]
  - Skin exfoliation [Recovered/Resolved]
  - Nausea [Unknown]
  - Malignant neoplasm progression [Unknown]
  - Facial pain [Recovered/Resolved]
  - Oral discomfort [Not Recovered/Not Resolved]
  - Alopecia [Unknown]
  - Pain [Recovered/Resolved]
  - Cough [Unknown]
  - Diarrhoea [Recovered/Resolved]
  - Muscle necrosis [Unknown]
  - Weight decreased [Unknown]
  - Constipation [Unknown]
  - Rash pruritic [Recovered/Resolved]
  - Arrhythmia [Unknown]
  - Paraesthesia oral [Unknown]
  - Mouth injury [Recovering/Resolving]
  - Lip disorder [Unknown]
  - Hypoaesthesia [Unknown]
  - Neoplasm [Unknown]
  - Weight increased [Unknown]
  - Malaise [Unknown]
  - Inappropriate schedule of drug administration [Unknown]
  - Pneumonia [Recovering/Resolving]
  - Gastrointestinal disorder [Unknown]
  - Productive cough [Not Recovered/Not Resolved]
  - Diarrhoea [Not Recovered/Not Resolved]
  - Inappropriate schedule of drug administration [Unknown]

NARRATIVE: CASE EVENT DATE: 2017
